FAERS Safety Report 8577969-7 (Version None)
Quarter: 2012Q3

REPORT INFORMATION
  Report Type: 
  Country: None (occurrence: None)
  Receive Date: 20120725
  Receipt Date: 20120713
  Transmission Date: 20120928
  Serious: Yes (Other)
  Sender: FDA-Public Use
  Company Number: JP-2012-15850

PATIENT
  Age: 84 Year
  Sex: Male
  Weight: 63 kg

DRUGS (4)
  1. LASIX [Concomitant]
  2. ALDACTONE [Concomitant]
  3. SAMSCA [Suspect]
     Indication: FLUID RETENTION
     Dosage: 15 MG MILLIGRAM(S), QAM, ORAL
     Route: 048
     Dates: start: 20120606
  4. TORSEMIDE [Concomitant]

REACTIONS (2)
  - THIRST [None]
  - ANAEMIA [None]
